FAERS Safety Report 12124982 (Version 1)
Quarter: 2016Q1

REPORT INFORMATION
  Report Type: Spontaneous
  Country: SI (occurrence: SI)
  Receive Date: 20160229
  Receipt Date: 20160229
  Transmission Date: 20160526
  Serious: Yes (Other)
  Sender: FDA-Public Use
  Company Number: SI-MACLEODS PHARMACEUTICALS US LTD-MAC2015001632

PATIENT

DRUGS (5)
  1. DONEPEZIL. [Suspect]
     Active Substance: DONEPEZIL
     Indication: DEMENTIA ALZHEIMER^S TYPE
     Dosage: 5 MG, QD (FOR 2 MONTH)
     Route: 065
  2. TIANEPTINE [Concomitant]
     Active Substance: TIANEPTINE
     Indication: DEPRESSION
     Dosage: 6.25 MG, BID (1 WEEK)
     Route: 065
  3. GALANTAMINE. [Suspect]
     Active Substance: GALANTAMINE
     Indication: DEMENTIA ALZHEIMER^S TYPE
     Dosage: 8 MG, QD (SUSTAINED RELEASE FORMULATION )
     Route: 065
  4. DONEPEZIL. [Suspect]
     Active Substance: DONEPEZIL
     Dosage: 10 MG, QD
     Route: 065
  5. TIANEPTINE [Concomitant]
     Active Substance: TIANEPTINE
     Dosage: 12.5 MG, BID
     Route: 065

REACTIONS (8)
  - Decreased appetite [Unknown]
  - Hypogeusia [Unknown]
  - Hyposmia [Unknown]
  - Anxiety [Unknown]
  - Libido increased [Recovered/Resolved]
  - Emotional distress [Recovered/Resolved]
  - Middle insomnia [Recovered/Resolved]
  - Terminal insomnia [Recovered/Resolved]
